FAERS Safety Report 7305271-X (Version None)
Quarter: 2011Q1

REPORT INFORMATION
  Report Type: 
  Country: None (occurrence: None)
  Receive Date: 20110222
  Receipt Date: 20110216
  Transmission Date: 20110831
  Serious: Yes (Other)
  Sender: FDA-Public Use
  Company Number: TR-PFIZER INC-2011034104

PATIENT
  Age: 35 Year
  Sex: Male

DRUGS (2)
  1. EFFEXOR XR [Suspect]
     Dosage: 75 MG, UNK
  2. EFFEXOR XR [Suspect]
     Dosage: 37.5 MG, UNK

REACTIONS (2)
  - WEIGHT INCREASED [None]
  - DEPENDENCE [None]
